FAERS Safety Report 5431057-7 (Version None)
Quarter: 2007Q3

REPORT INFORMATION
  Report Type: 
  Country: None (occurrence: None)
  Receive Date: 20070830
  Receipt Date: 20070129
  Transmission Date: 20080115
  Serious: No
  Sender: FDA-Public Use
  Company Number: A0637397A

PATIENT
  Age: 50 Year
  Sex: Female

DRUGS (6)
  1. WELLBUTRIN XL [Suspect]
     Indication: DEPRESSION
     Dosage: 150MG PER DAY
     Route: 048
     Dates: start: 20070124
  2. ALLEGRA D 24 HOUR [Concomitant]
  3. SYNTHROID [Concomitant]
  4. CENESTIN [Concomitant]
  5. DICLOFENAC SODIUM [Concomitant]
  6. HYDROCHLOROTHIAZIDE [Concomitant]

REACTIONS (11)
  - AGITATION [None]
  - ANXIETY [None]
  - FEELING HOT [None]
  - FLUSHING [None]
  - HEADACHE [None]
  - HEART RATE INCREASED [None]
  - HYPERHIDROSIS [None]
  - INSOMNIA [None]
  - NIGHTMARE [None]
  - POLLAKIURIA [None]
  - VISUAL FIELD DEFECT [None]
